FAERS Safety Report 5509631-9 (Version None)
Quarter: 2007Q4

REPORT INFORMATION
  Report Type: 
  Country: None (occurrence: None)
  Receive Date: 20071108
  Receipt Date: 20071029
  Transmission Date: 20080405
  Serious: Yes (Other)
  Sender: FDA-Public Use
  Company Number: PHBS2007JP18300

PATIENT
  Sex: Female

DRUGS (2)
  1. RITALIN [Suspect]
     Indication: DEPRESSION
     Dosage: 10 MG, TID
     Route: 048
  2. RITALIN [Suspect]
     Dosage: 10 MG/DAY
     Route: 048

REACTIONS (1)
  - ASTHENIA [None]
